FAERS Safety Report 13573241 (Version 6)
Quarter: 2018Q1

REPORT INFORMATION
  Report Type: Spontaneous
  Country: JP (occurrence: JP)
  Receive Date: 20170523
  Receipt Date: 20180323
  Transmission Date: 20180508
  Serious: Yes (Death, Other)
  Sender: FDA-Public Use
  Company Number: JP-009507513-1705JPN001587J

PATIENT
  Age: 52 Year
  Sex: Male
  Weight: 57 kg

DRUGS (8)
  1. FENTOS [Concomitant]
     Active Substance: FENTANYL
     Dosage: 3.0 MG, QD
     Route: 062
     Dates: end: 20170416
  2. MAGMITT [Concomitant]
     Active Substance: MAGNESIUM OXIDE
     Indication: PROPHYLAXIS
     Dosage: 660 MG, BID
     Route: 048
     Dates: end: 20170430
  3. KEYTRUDA [Suspect]
     Active Substance: PEMBROLIZUMAB
     Indication: SQUAMOUS CELL CARCINOMA OF LUNG
     Dosage: 200 MG, Q3W
     Route: 041
     Dates: start: 20170328, end: 20170421
  4. CELECOX [Concomitant]
     Active Substance: CELECOXIB
     Dosage: 200 MG, BID
     Route: 048
     Dates: end: 20170430
  5. MIYA-BM [Concomitant]
     Active Substance: CLOSTRIDIUM BUTYRICUM SPORES STRAIN M-55
     Indication: PROPHYLAXIS
     Dosage: 1.0 G, TID
     Route: 048
     Dates: end: 20170430
  6. CALONAL [Concomitant]
     Active Substance: ACETAMINOPHEN
     Dosage: 400 MG, QID
     Route: 048
     Dates: end: 20170430
  7. LYRICA [Concomitant]
     Active Substance: PREGABALIN
     Dosage: 50 MG, TID
     Route: 048
     Dates: end: 20170418
  8. TAKECAB [Concomitant]
     Active Substance: VONOPRAZAN FUMURATE
     Indication: PROPHYLAXIS
     Dosage: 20 MG, QD
     Route: 048
     Dates: end: 20170430

REACTIONS (4)
  - Malignant neoplasm progression [Fatal]
  - Cancer pain [Recovering/Resolving]
  - Pneumonia bacterial [Not Recovered/Not Resolved]
  - Haemoptysis [Fatal]

NARRATIVE: CASE EVENT DATE: 20170417
